FAERS Safety Report 11703335 (Version 2)
Quarter: 2016Q1

REPORT INFORMATION
  Report Type: Spontaneous
  Country: NZ (occurrence: NZ)
  Receive Date: 20151105
  Receipt Date: 20160119
  Transmission Date: 20160525
  Serious: Yes (Death)
  Sender: FDA-Public Use
  Company Number: NZ-ELI_LILLY_AND_COMPANY-NZ201510009807

PATIENT
  Age: 84 Year
  Sex: Female
  Weight: 38 kg

DRUGS (1)
  1. FORTEO [Suspect]
     Active Substance: TERIPARATIDE
     Indication: PRODUCT USED FOR UNKNOWN INDICATION
     Dosage: UNK, UNKNOWN
     Route: 065
     Dates: start: 20140707

REACTIONS (2)
  - Osteoporosis [Fatal]
  - Multiple fractures [Fatal]

NARRATIVE: CASE EVENT DATE: 201505
